FAERS Safety Report 20778484 (Version 1)
Quarter: 2022Q2

REPORT INFORMATION
  Report Type: Spontaneous
  Country: US (occurrence: US)
  Receive Date: 20220503
  Receipt Date: 20220503
  Transmission Date: 20220721
  Serious: Yes (Hospitalization, Other)
  Sender: FDA-Public Use
  Company Number: US-AMNEAL PHARMACEUTICALS-2021-AMRX-03703

PATIENT
  Sex: Female
  Weight: 10.884 kg

DRUGS (5)
  1. VIGABATRIN [Suspect]
     Active Substance: VIGABATRIN
     Indication: Infantile spasms
     Dosage: 750 MILLIGRAM, 2 /DAY
     Route: 048
  2. VIGABATRIN [Suspect]
     Active Substance: VIGABATRIN
     Dosage: 600 MILLIGRAM, 2 /DAY (12ML)
     Route: 048
  3. VIGABATRIN [Suspect]
     Active Substance: VIGABATRIN
     Dosage: 450 MILLIGRAM, 2 /DAY (9ML)
     Route: 048
  4. VIGABATRIN [Suspect]
     Active Substance: VIGABATRIN
     Dosage: 300 MILLIGRAM, 2 /DAY (6ML)
     Route: 048
  5. VIGABATRIN [Suspect]
     Active Substance: VIGABATRIN
     Dosage: 150 MILLIGRAM, 2 /DAY (2ML)
     Route: 048

REACTIONS (1)
  - Seizure [Unknown]
